FAERS Safety Report 4327644-X (Version None)
Quarter: 2004Q1

REPORT INFORMATION
  Report Type: 
  Country: None (occurrence: None)
  Receive Date: 20040331
  Receipt Date: 20040319
  Transmission Date: 20041129
  Serious: Yes (Hospitalization)
  Sender: FDA-Public Use
  Company Number: PHBS2004JP03995

PATIENT
  Age: 35 Year
  Sex: Male
  Weight: 40 kg

DRUGS (3)
  1. HYDROCHLOROTHIAZIDE [Suspect]
  2. INDOMETHACIN [Concomitant]
  3. POTASSIUM SUPPLEMENTS [Concomitant]

REACTIONS (4)
  - ALKALOSIS HYPOCHLORAEMIC [None]
  - GASTRITIS [None]
  - HYPOKALAEMIA [None]
  - SUBILEUS [None]
